FAERS Safety Report 22200190 (Version 3)
Quarter: 2025Q4

REPORT INFORMATION
  Report Type: Spontaneous
  Country: EU (occurrence: EU)
  Receive Date: 20230412
  Receipt Date: 20251029
  Transmission Date: 20260117
  Serious: Yes (Hospitalization, Other)
  Sender: ACCORD
  Company Number: EU-Accord-307474

PATIENT
  Age: 63 Year
  Sex: Male

DRUGS (3)
  1. MYCOPHENOLATE MOFETIL [Suspect]
     Active Substance: MYCOPHENOLATE MOFETIL
     Indication: Immunosuppressant drug therapy
  2. TACROLIMUS [Suspect]
     Active Substance: TACROLIMUS
     Indication: Immunosuppressant drug therapy
     Dosage: REDUCED BY 60%, WITH A TROUGH LEVEL OF AROUND 8 NG/ML
  3. PREDNISONE [Suspect]
     Active Substance: PREDNISONE
     Indication: Immunosuppressant drug therapy

REACTIONS (2)
  - Phaeohyphomycosis [Recovered/Resolved]
  - Alternaria infection [Recovered/Resolved]
